FAERS Safety Report 6767641-8 (Version None)
Quarter: 2010Q2

REPORT INFORMATION
  Report Type: 
  Country: None (occurrence: None)
  Receive Date: 20100614
  Receipt Date: 20100604
  Transmission Date: 20101027
  Serious: Yes (Hospitalization)
  Sender: FDA-Public Use
  Company Number: JP-ABBOTT-10P-087-0645799-00

PATIENT
  Sex: Female

DRUGS (11)
  1. HUMIRA [Suspect]
     Indication: RHEUMATOID ARTHRITIS
     Route: 058
     Dates: start: 20091001, end: 20100204
  2. MIZORIBINE [Concomitant]
     Indication: RHEUMATOID ARTHRITIS
     Dosage: DAILY
     Dates: end: 20100204
  3. PREDNISOLONE [Concomitant]
     Indication: RHEUMATOID ARTHRITIS
     Dosage: DAILY
     Route: 048
  4. RANITIDINE HYDROCHLORIDE [Concomitant]
     Indication: DRUG USE FOR UNKNOWN INDICATION
     Dosage: DAILY
  5. MECOBALAMIN [Concomitant]
     Indication: NEUROPATHY PERIPHERAL
     Dosage: 1500 MCG, DAILY
  6. MECOBALAMIN [Concomitant]
     Indication: PROPHYLAXIS
  7. LORNOXICAM [Concomitant]
     Indication: RHEUMATOID ARTHRITIS
     Dosage: DAILY
  8. CETRAXATE HYDROCHLORIDE [Concomitant]
     Indication: DRUG USE FOR UNKNOWN INDICATION
     Dosage: DAILY
  9. ALENDRONATE SODIUM [Concomitant]
     Indication: DRUG USE FOR UNKNOWN INDICATION
  10. RILMAZAFONE HYDROCHLORIDE HYDRATE [Concomitant]
     Indication: DRUG USE FOR UNKNOWN INDICATION
     Dosage: DAILY
  11. VOGLIBOSE [Concomitant]
     Indication: DRUG USE FOR UNKNOWN INDICATION
     Dosage: DAILY

REACTIONS (2)
  - RHEUMATOID ARTHRITIS [None]
  - SUBARACHNOID HAEMORRHAGE [None]
